FAERS Safety Report 25931524 (Version 2)
Quarter: 2025Q4

REPORT INFORMATION
  Report Type: Spontaneous
  Country: EU (occurrence: EU)
  Receive Date: 20251016
  Receipt Date: 20251027
  Transmission Date: 20260118
  Serious: Yes (Hospitalization)
  Sender: GUERBET
  Company Number: None

PATIENT
  Age: 76 Year
  Sex: Male
  Weight: 96 kg

DRUGS (12)
  1. LIPIODOL [Suspect]
     Active Substance: ETHIODIZED OIL
     Indication: Portal vein embolisation
     Route: 042
     Dates: start: 20250827, end: 20250827
  2. VISIPAQUE [Suspect]
     Active Substance: IODIXANOL
     Indication: Portal vein embolisation
     Route: 042
     Dates: start: 20250827, end: 20250827
  3. TRAMADOL HYDROCHLORIDE [Suspect]
     Active Substance: TRAMADOL HYDROCHLORIDE
     Indication: Anaesthesia
     Route: 042
     Dates: start: 20250827, end: 20250827
  4. KETOPROFEN [Suspect]
     Active Substance: KETOPROFEN
     Indication: Anaesthesia
     Route: 042
     Dates: start: 20250827, end: 20250827
  5. DEXAMETHASONE [Suspect]
     Active Substance: DEXAMETHASONE
     Indication: Anaesthesia
     Route: 042
     Dates: start: 20250827, end: 20250827
  6. SUFENTANIL CITRATE [Suspect]
     Active Substance: SUFENTANIL CITRATE
     Indication: Anaesthesia
     Route: 042
     Dates: start: 20250827, end: 20250827
  7. ACETAMINOPHEN [Suspect]
     Active Substance: ACETAMINOPHEN
     Indication: Anaesthesia
     Route: 042
     Dates: start: 20250827, end: 20250827
  8. ATRACURIUM [Suspect]
     Active Substance: ATRACURIUM
     Indication: Anaesthesia
     Route: 042
     Dates: start: 20250827, end: 20250827
  9. PROPOFOL [Suspect]
     Active Substance: PROPOFOL
     Indication: Anaesthesia
     Route: 042
     Dates: start: 20250827, end: 20250827
  10. ENBUCRILATE [Suspect]
     Active Substance: ENBUCRILATE
     Indication: Portal vein embolisation
     Route: 042
  11. ENALAPRIL\LERCANIDIPINE [Concomitant]
     Active Substance: ENALAPRIL\LERCANIDIPINE
     Indication: Product used for unknown indication
  12. ATENOLOL [Concomitant]
     Active Substance: ATENOLOL
     Indication: Product used for unknown indication

REACTIONS (2)
  - Product use in unapproved indication [Recovered/Resolved]
  - Drug reaction with eosinophilia and systemic symptoms [Recovered/Resolved]

NARRATIVE: CASE EVENT DATE: 20250827
